FAERS Safety Report 8574878 (Version 4)
Quarter: 2013Q1

REPORT INFORMATION
  Report Type: Spontaneous
  Country: DK (occurrence: DK)
  Receive Date: 20120523
  Receipt Date: 20130225
  Transmission Date: 20140127
  Serious: Yes (Death, Life-Threatening)
  Sender: FDA-Public Use
  Company Number: DK-BRISTOL-MYERS SQUIBB COMPANY-16594863

PATIENT
  Age: 39 Year
  Sex: Male
  Weight: 150 kg

DRUGS (1)
  1. ABILIFY TABS 30 MG [Suspect]
     Indication: SCHIZOAFFECTIVE DISORDER
     Dosage: STYRKE: 30 MG?TABS
     Route: 048
     Dates: start: 2009

REACTIONS (2)
  - Death [Fatal]
  - Cor pulmonale [Unknown]
